FAERS Safety Report 25641471 (Version 2)
Quarter: 2025Q3

REPORT INFORMATION
  Report Type: Report from Study
  Country: US (occurrence: US)
  Receive Date: 20250804
  Receipt Date: 20250915
  Transmission Date: 20251021
  Serious: No
  Sender: MALLINCKRODT
  Company Number: US-MALLINCKRODT-MNK202504702

PATIENT
  Sex: Female

DRUGS (1)
  1. CORTICOTROPIN [Suspect]
     Active Substance: CORTICOTROPIN
     Indication: Dry eye
     Dates: start: 20241101

REACTIONS (7)
  - Blood glucose increased [Unknown]
  - Swelling [Unknown]
  - Headache [Unknown]
  - Swelling face [Unknown]
  - Weight increased [Unknown]
  - Poor quality sleep [Unknown]
  - Peripheral swelling [Unknown]
